FAERS Safety Report 8935076 (Version 2)
Quarter: 2013Q1

REPORT INFORMATION
  Report Type: Spontaneous
  Country: GB (occurrence: GB)
  Receive Date: 20121129
  Receipt Date: 20130118
  Transmission Date: 20140127
  Serious: Yes (Other)
  Sender: FDA-Public Use
  Company Number: GB-VERTEX PHARMACEUTICAL INC.-2012-025319

PATIENT
  Age: 36 Year
  Sex: Female
  Weight: 42 kg

DRUGS (9)
  1. INCIVO [Suspect]
     Indication: PRODUCT USED FOR UNKNOWN INDICATION
     Dosage: DOSAGE FORM: TABLET
     Route: 048
     Dates: start: 20121001, end: 20121212
  2. INCIVO [Suspect]
     Indication: HEPATITIS C
  3. VIRAFERON PEG [Concomitant]
     Indication: HEPATITIS C
     Dosage: DOSAGE FORM: UNKNOWN, 80MCG/0.4
     Route: 065
     Dates: start: 20120825
  4. RIBAVIRIN [Concomitant]
     Indication: HEPATITIS C
     Dosage: DOSAGE FORM: UNKNOWN
     Route: 065
     Dates: start: 20120825
  5. OMEPRAZOLE [Concomitant]
     Indication: DUODENAL ULCER
     Dosage: 20 MG, QD
     Dates: start: 201206
  6. MAALOX PLUS [Concomitant]
     Indication: ABDOMINAL PAIN
  7. TRAMADOL [Concomitant]
     Dosage: 50 MG, BID
     Dates: start: 20121130
  8. MEBEVERINE [Concomitant]
  9. LAXIDO [Concomitant]
     Indication: CONSTIPATION

REACTIONS (6)
  - Abdominal pain [Recovered/Resolved]
  - Abdominal distension [Recovered/Resolved]
  - Anaemia [Unknown]
  - Constipation [Unknown]
  - Menorrhagia [Recovered/Resolved]
  - Muscle spasms [Recovered/Resolved]
